FAERS Safety Report 6014458-8 (Version None)
Quarter: 2008Q4

REPORT INFORMATION
  Report Type: 
  Country: None (occurrence: None)
  Receive Date: 20081219
  Receipt Date: 20080627
  Transmission Date: 20090506
  Serious: No
  Sender: FDA-Public Use
  Company Number: A0735187A

PATIENT
  Age: 86 Year
  Sex: Male

DRUGS (7)
  1. AVODART [Suspect]
     Indication: BENIGN PROSTATIC HYPERPLASIA
     Dosage: .5MG PER DAY
     Route: 048
     Dates: start: 20080101
  2. NAMENDA [Concomitant]
  3. LYRICA [Concomitant]
  4. AMITIZA [Concomitant]
  5. PROMETHAZINE [Concomitant]
  6. MUCINEX [Concomitant]
  7. ASCORBIC ACID [Concomitant]

REACTIONS (1)
  - ENURESIS [None]
